FAERS Safety Report 9706092 (Version 1)
Quarter: 2013Q4

REPORT INFORMATION
  Report Type: Spontaneous
  Country: US (occurrence: US)
  Receive Date: 20131124
  Receipt Date: 20131124
  Transmission Date: 20140711
  Serious: No
  Sender: FDA-Public Use
  Company Number: US-SANOFI-AVENTIS-2012SA076552

PATIENT
  Sex: Male
  Weight: 79.3 kg

DRUGS (2)
  1. PLAVIX [Suspect]
     Indication: STENT PLACEMENT
     Route: 048
     Dates: start: 201210
  2. CLOPIDOGREL BISULFATE [Suspect]
     Indication: STENT PLACEMENT
     Route: 065
     Dates: start: 20120823

REACTIONS (4)
  - Weight decreased [Unknown]
  - Rash pruritic [Not Recovered/Not Resolved]
  - Excoriation [Not Recovered/Not Resolved]
  - Urticaria [Not Recovered/Not Resolved]
